FAERS Safety Report 8893886 (Version 2)
Quarter: 2012Q4

REPORT INFORMATION
  Report Type: 
  Country: US (occurrence: US)
  Receive Date: 20121107
  Receipt Date: 20121114
  Transmission Date: 20130627
  Serious: Yes (Other)
  Sender: FDA-Public Use
  Company Number: CHPA2012US023084

PATIENT
  Age: 75 Year
  Sex: Female

DRUGS (3)
  1. VOLTAREN GEL [Suspect]
     Indication: ARTHRITIS
     Dosage: 2 or 4 grams
     Route: 061
     Dates: start: 201011
  2. PRADAXA [Concomitant]
  3. SINGULAIR [Concomitant]

REACTIONS (8)
  - Rotator cuff syndrome [Not Recovered/Not Resolved]
  - Neck injury [Not Recovered/Not Resolved]
  - Middle ear effusion [Recovered/Resolved]
  - Concomitant disease aggravated [Recovered/Resolved]
  - Therapeutic response unexpected [Unknown]
  - Wrong technique in drug usage process [Unknown]
  - Underdose [Unknown]
  - Drug administered at inappropriate site [Unknown]
